FAERS Safety Report 7062679-8 (Version None)
Quarter: 2010Q4

REPORT INFORMATION
  Report Type: 
  Country: None (occurrence: None)
  Receive Date: 20101026
  Receipt Date: 20091127
  Transmission Date: 20110411
  Serious: Yes (Other)
  Sender: FDA-Public Use
  Company Number: US-PFIZER INC-2009306204

PATIENT
  Sex: Female

DRUGS (2)
  1. LIPITOR [Suspect]
     Indication: BLOOD CHOLESTEROL INCREASED
  2. LIPITOR [Suspect]
     Dosage: 20 MG, 1X/DAY

REACTIONS (3)
  - BLOOD CHOLESTEROL INCREASED [None]
  - HYPERTENSION [None]
  - MUSCLE SPASMS [None]
